FAERS Safety Report 12316874 (Version 2)
Quarter: 2016Q2

REPORT INFORMATION
  Report Type: Other
  Country: GB (occurrence: GB)
  Receive Date: 20160429
  Receipt Date: 20160429
  Transmission Date: 20160815
  Serious: Yes (Other)
  Sender: FDA-Public Use
  Company Number: GB-CIPLA LTD.-2016GB04226

PATIENT

DRUGS (5)
  1. RAMIPRIL. [Suspect]
     Active Substance: RAMIPRIL
     Indication: HYPERTENSION
     Dosage: 2.5 MG, UNK
     Route: 048
     Dates: start: 20160325, end: 20160326
  2. MERCURY PHARMS LEVOTHYROXINE [Concomitant]
     Dosage: UNK
     Route: 065
  3. ACTAVIS UK PREDNISOLONE [Concomitant]
     Dosage: UNK
     Route: 065
  4. DOXEPIN HYDROCHLORIDE. [Concomitant]
     Active Substance: DOXEPIN HYDROCHLORIDE
     Dosage: UNK
     Route: 065
  5. SALPADOL [Concomitant]
     Dosage: UNK
     Route: 065

REACTIONS (3)
  - Ear pain [Not Recovered/Not Resolved]
  - Deafness [Recovered/Resolved with Sequelae]
  - Ototoxicity [Unknown]

NARRATIVE: CASE EVENT DATE: 20160325
